FAERS Safety Report 18203518 (Version 3)
Quarter: 2021Q1

REPORT INFORMATION
  Report Type: Report from Study
  Country: US (occurrence: US)
  Receive Date: 20200827
  Receipt Date: 20210126
  Transmission Date: 20210419
  Serious: Yes (Hospitalization, Other)
  Sender: FDA-Public Use
  Company Number: US-SHIRE-US202020742

PATIENT
  Sex: Male
  Weight: 75 kg

DRUGS (8)
  1. TEDUGLUTIDE [Suspect]
     Active Substance: TEDUGLUTIDE
     Indication: PRODUCT USED FOR UNKNOWN INDICATION
     Dosage: 0.38 MILLILITER, 1X/DAY:QD
     Route: 058
  2. TEDUGLUTIDE [Suspect]
     Active Substance: TEDUGLUTIDE
     Indication: PRODUCT USED FOR UNKNOWN INDICATION
     Dosage: 0.38 MILLILITER, 1X/DAY:QD
     Route: 058
  3. TEDUGLUTIDE [Suspect]
     Active Substance: TEDUGLUTIDE
     Dosage: 0.377 INTERNATIONAL UNIT, QD
     Route: 065
     Dates: start: 20200102
  4. TEDUGLUTIDE [Suspect]
     Active Substance: TEDUGLUTIDE
     Indication: PRODUCT USED FOR UNKNOWN INDICATION
     Dosage: 0.38 MILLILITER, 1X/DAY:QD
     Route: 058
  5. TEDUGLUTIDE [Suspect]
     Active Substance: TEDUGLUTIDE
     Dosage: 0.377 INTERNATIONAL UNIT, QD
     Route: 065
     Dates: start: 20200102
  6. TEDUGLUTIDE [Suspect]
     Active Substance: TEDUGLUTIDE
     Indication: PRODUCT USED FOR UNKNOWN INDICATION
     Dosage: 0.38 MILLILITER, 1X/DAY:QD
     Route: 058
  7. TEDUGLUTIDE [Suspect]
     Active Substance: TEDUGLUTIDE
     Dosage: 0.377 INTERNATIONAL UNIT, QD
     Route: 065
     Dates: start: 20200102
  8. TEDUGLUTIDE [Suspect]
     Active Substance: TEDUGLUTIDE
     Dosage: 0.377 INTERNATIONAL UNIT, QD
     Route: 065
     Dates: start: 20200102

REACTIONS (4)
  - Abdominal pain [Unknown]
  - Device related sepsis [Unknown]
  - Pyrexia [Unknown]
  - Hernia [Unknown]
